FAERS Safety Report 20411532 (Version 7)
Quarter: 2023Q1

REPORT INFORMATION
  Report Type: Spontaneous
  Country: US (occurrence: US)
  Receive Date: 20220201
  Receipt Date: 20230127
  Transmission Date: 20230418
  Serious: Yes (Hospitalization, Other)
  Sender: FDA-Public Use
  Company Number: US-PFIZER INC-202200116587

PATIENT
  Age: 88 Year
  Sex: Male
  Weight: 81.65 kg

DRUGS (2)
  1. VYNDAMAX [Suspect]
     Active Substance: TAFAMIDIS
     Indication: Amyloidosis
     Dosage: 61 MG, DAILY (EVERY MORNING)
     Dates: start: 2021
  2. INSULIN NOS [Concomitant]
     Active Substance: INSULIN NOS
     Dosage: UNK

REACTIONS (7)
  - Poisoning [Unknown]
  - Fall [Recovered/Resolved]
  - Upper limb fracture [Recovered/Resolved]
  - Mental disorder [Unknown]
  - Panic reaction [Unknown]
  - Fatigue [Not Recovered/Not Resolved]
  - Walking aid user [Unknown]

NARRATIVE: CASE EVENT DATE: 20210101
